FAERS Safety Report 6437698-2 (Version None)
Quarter: 2009Q4

REPORT INFORMATION
  Report Type: 
  Country: None (occurrence: None)
  Receive Date: 20091109
  Receipt Date: 20091027
  Transmission Date: 20100525
  Serious: Yes (Hospitalization)
  Sender: FDA-Public Use
  Company Number: 2009AL006975

PATIENT
  Age: 85 Year
  Sex: Female

DRUGS (7)
  1. RAMIPRIL [Suspect]
     Indication: HYPERTENSION
     Dosage: 5 MG;PO
     Route: 048
     Dates: start: 20070801
  2. SULPIRIDE [Concomitant]
  3. ACETYLSALICYLIC ACID [Concomitant]
  4. ACTRAPID HUMAN [Concomitant]
  5. DIGITOXIN INJ [Concomitant]
  6. LANTUS [Concomitant]
  7. NITRENDIPINE [Concomitant]

REACTIONS (8)
  - BLOOD UREA INCREASED [None]
  - CHOLELITHIASIS [None]
  - CONSTIPATION [None]
  - ESCHERICHIA URINARY TRACT INFECTION [None]
  - FAECALOMA [None]
  - FLATULENCE [None]
  - HAEMOGLOBIN DECREASED [None]
  - RED BLOOD CELL COUNT DECREASED [None]
